FAERS Safety Report 4857718-6 (Version None)
Quarter: 2005Q4

REPORT INFORMATION
  Report Type: 
  Country: None (occurrence: None)
  Receive Date: 20051219
  Receipt Date: 20050613
  Transmission Date: 20060501
  Serious: No
  Sender: FDA-Public Use
  Company Number: US-GLAXOSMITHKLINE-A0562351A

PATIENT
  Age: 64 Year
  Sex: Male

DRUGS (2)
  1. EQUATE NTS 21MG [Suspect]
     Dates: start: 20050103, end: 20050104
  2. COMMIT [Suspect]
     Dates: start: 20050613, end: 20050613

REACTIONS (3)
  - DYSPEPSIA [None]
  - ORAL DISCOMFORT [None]
  - SKIN IRRITATION [None]
